FAERS Safety Report 8847905 (Version 1)
Quarter: 2012Q4

REPORT INFORMATION
  Report Type: 
  Country: JP (occurrence: JP)
  Receive Date: 20121018
  Receipt Date: 20121018
  Transmission Date: 20130627
  Serious: Yes (Other)
  Sender: FDA-Public Use
  Company Number: JP-PFIZER INC-2012259719

PATIENT
  Age: 51 Year
  Sex: Female

DRUGS (4)
  1. LIPITOR [Suspect]
     Indication: HYPERCHOLESTEROLAEMIA
     Dosage: 10 mg, 1x/day
     Route: 048
     Dates: start: 20120417, end: 20120618
  2. LIPITOR [Suspect]
     Dosage: 5 mg, 1x/day
     Route: 048
     Dates: start: 20120618
  3. MYSLEE [Concomitant]
     Dosage: 10 mg, UNK
     Route: 048
     Dates: start: 20120417, end: 20120514
  4. DEPROMEL [Concomitant]
     Dosage: 75 mg, UNK
     Dates: start: 20120417, end: 20120514

REACTIONS (1)
  - Postmenopausal haemorrhage [Recovered/Resolved]
